FAERS Safety Report 4357783-9 (Version None)
Quarter: 2004Q2

REPORT INFORMATION
  Report Type: 
  Country: None (occurrence: None)
  Receive Date: 20040512
  Receipt Date: 20040504
  Transmission Date: 20050107
  Serious: Yes (Death)
  Sender: FDA-Public Use
  Company Number: USA-2004-0014959

PATIENT
  Age: 38 Year
  Sex: Female
  Weight: 272.1 kg

DRUGS (2)
  1. OXYCODONE HCL [Suspect]
  2. AMITRIPTYLINE HCL [Suspect]

REACTIONS (14)
  - ACCIDENTAL OVERDOSE [None]
  - CARDIAC DISORDER [None]
  - CARDIOMEGALY [None]
  - GALLBLADDER DISORDER [None]
  - HEPATOSPLENOMEGALY [None]
  - HYPERAEMIA [None]
  - PANCREATIC NECROSIS [None]
  - PERITONEAL FLUID ANALYSIS ABNORMAL [None]
  - PULMONARY OEDEMA [None]
  - RENAL DISORDER [None]
  - RESPIRATORY DEPRESSION [None]
  - SPLEEN DISORDER [None]
  - TRACHEAL DISORDER [None]
  - VENTRICULAR HYPERTROPHY [None]
